FAERS Safety Report 8992360 (Version 1)
Quarter: 2012Q4

REPORT INFORMATION
  Report Type: 
  Country: JP (occurrence: JP)
  Receive Date: 20121231
  Receipt Date: 20121231
  Transmission Date: 20130627
  Serious: Yes (Death)
  Sender: FDA-Public Use
  Company Number: JP-JNJFOC-20121101303

PATIENT
  Age: 77 Year
  Sex: Male

DRUGS (3)
  1. DUROTEP MT [Suspect]
     Indication: CANCER PAIN
     Route: 062
  2. DUROTEP MT [Suspect]
     Indication: CANCER PAIN
     Route: 062
     Dates: start: 20121016
  3. CODEINE PHOSPHATE [Concomitant]
     Indication: CANCER PAIN
     Route: 048

REACTIONS (2)
  - Lung neoplasm malignant [Fatal]
  - Somnolence [Not Recovered/Not Resolved]
